FAERS Safety Report 8756974 (Version 2)
Quarter: 2012Q4

REPORT INFORMATION
  Report Type: 
  Country: JP (occurrence: JP)
  Receive Date: 20120828
  Receipt Date: 20120920
  Transmission Date: 20130627
  Serious: Yes (Other)
  Sender: FDA-Public Use
  Company Number: JP-SANOFI-AVENTIS-2012SA060897

PATIENT
  Age: 64 Year
  Sex: Female

DRUGS (8)
  1. FLUOROURACIL [Suspect]
     Indication: BREAST CANCER
     Route: 065
  2. EPIRUBICIN [Suspect]
     Indication: BREAST CANCER
     Route: 065
  3. CYCLOPHOSPHAMIDE [Suspect]
     Indication: BREAST CANCER
     Route: 065
  4. TAXOTERE [Suspect]
     Indication: BREAST CANCER
     Route: 042
     Dates: start: 20120410, end: 20120502
  5. PACLITAXEL [Suspect]
     Indication: BREAST CANCER
     Route: 065
  6. LEVOFLOXACIN [Suspect]
     Indication: DRUG USE FOR UNKNOWN INDICATION
     Route: 065
  7. I.V. SOLUTIONS [Concomitant]
  8. CIPROXAN [Concomitant]
     Dosage: received 6 tablets for 4 days
     Route: 048

REACTIONS (8)
  - Tubulointerstitial nephritis [Recovering/Resolving]
  - Malaise [Recovering/Resolving]
  - White blood cell count increased [Recovering/Resolving]
  - C-reactive protein increased [Recovering/Resolving]
  - Blood urea increased [Recovering/Resolving]
  - Blood creatinine increased [Recovering/Resolving]
  - Urine output decreased [Recovered/Resolved]
  - Neuropathy peripheral [Unknown]
